FAERS Safety Report 5966028-5 (Version None)
Quarter: 2008Q4

REPORT INFORMATION
  Report Type: 
  Country: None (occurrence: None)
  Receive Date: 20081125
  Receipt Date: 20081118
  Transmission Date: 20090506
  Serious: Yes (Other)
  Sender: FDA-Public Use
  Company Number: US-WYE-H06915808

PATIENT
  Age: 57 Year
  Sex: Male
  Weight: 113.5 kg

DRUGS (1)
  1. ADVIL LIQUI-GELS [Suspect]
     Indication: MIGRAINE
     Dosage: 1 LIQUI-GEL X 1
     Route: 048
     Dates: start: 20081110, end: 20081110

REACTIONS (8)
  - DYSPNOEA [None]
  - ERYTHEMA [None]
  - HYPERSENSITIVITY [None]
  - LOSS OF CONSCIOUSNESS [None]
  - OEDEMA PERIPHERAL [None]
  - PHARYNGEAL OEDEMA [None]
  - PRURITUS [None]
  - SWOLLEN TONGUE [None]
